FAERS Safety Report 8733648 (Version 2)
Quarter: 2012Q4

REPORT INFORMATION
  Report Type: 
  Country: FR (occurrence: FR)
  Receive Date: 20120821
  Receipt Date: 20120827
  Transmission Date: 20130627
  Serious: Yes (Disabling)
  Sender: FDA-Public Use
  Company Number: PHHY2012FR071343

PATIENT
  Age: 55 Year
  Sex: Female
  Weight: 51 kg

DRUGS (9)
  1. RITALINE [Suspect]
     Dosage: 40 mg Daily
     Route: 048
     Dates: start: 2005
  2. COLCHICINE [Concomitant]
     Indication: GOUT
     Dosage: 1 mg/ day
     Route: 048
     Dates: start: 2011
  3. ZOVIRAX [Concomitant]
     Indication: HERPES VIRUS INFECTION
  4. ASCOFER [Concomitant]
     Indication: IRON DEFICIENCY
  5. XALATAN [Concomitant]
     Indication: GLAUCOMA
  6. COLPRONE [Concomitant]
  7. ESTREVA [Concomitant]
     Indication: CONTRACEPTION
  8. LASILIX [Suspect]
  9. TRAMADOL [Concomitant]
     Indication: PAIN

REACTIONS (2)
  - Myalgia [Not Recovered/Not Resolved]
  - Blood creatine phosphokinase increased [Recovering/Resolving]
